FAERS Safety Report 16766024 (Version 1)
Quarter: 2019Q3

REPORT INFORMATION
  Report Type: Spontaneous
  Country: US (occurrence: US)
  Receive Date: 20190903
  Receipt Date: 20190903
  Transmission Date: 20191005
  Serious: Yes (Other)
  Sender: FDA-Public Use
  Company Number: US-BRISTOL-MYERS SQUIBB COMPANY-BMS-2019-084003

PATIENT
  Sex: Male
  Weight: 66.21 kg

DRUGS (2)
  1. COUMADIN [Suspect]
     Active Substance: WARFARIN SODIUM
     Indication: PRODUCT USED FOR UNKNOWN INDICATION
     Dosage: UNK
     Route: 065
  2. REMODULIN [Suspect]
     Active Substance: TREPROSTINIL
     Indication: HYPERTENSION
     Dosage: 1 DOSAGE FORM, CONTINUING
     Route: 058
     Dates: start: 20020614

REACTIONS (2)
  - Internal haemorrhage [Unknown]
  - Contusion [Unknown]
